FAERS Safety Report 9259465 (Version 1)
Quarter: 2013Q2

REPORT INFORMATION
  Report Type: Spontaneous
  Country: US (occurrence: US)
  Receive Date: 20130428
  Receipt Date: 20130428
  Transmission Date: 20140414
  Serious: No
  Sender: FDA-Public Use
  Company Number: US-BAYER-2013-052676

PATIENT
  Age: 10 Month
  Sex: 0

DRUGS (1)
  1. ALEVE CAPLET [Suspect]

REACTIONS (1)
  - Off label use [None]
